FAERS Safety Report 10641238 (Version 1)
Quarter: 2014Q4

REPORT INFORMATION
  Report Type: Spontaneous
  Country: FR (occurrence: None)
  Receive Date: 20141208
  Receipt Date: 20141208
  Transmission Date: 20150529
  Serious: Yes (Disabling)
  Sender: FDA-Public Use
  Company Number: 7337314

PATIENT
  Age: 0 Day
  Sex: Female

DRUGS (3)
  1. PROGESTAN [Suspect]
     Active Substance: PROGESTERONE
     Indication: DYSFUNCTIONAL UTERINE BLEEDING
     Dosage: PRODUCT TAKEN BY MOTHER
  2. LEVOTHYROX (LEVOTHYROXINE SODIUM) (LEVOTHYROXINE SODIUM) [Suspect]
     Active Substance: LEVOTHYROXINE SODIUM
     Indication: HYPOTHYROIDISM
     Dosage: PRODUCT TAKEN BY MOTHER
  3. RHOPHYLAC [Suspect]
     Active Substance: HUMAN RHO(D) IMMUNE GLOBULIN
     Indication: PRODUCT USED FOR UNKNOWN INDICATION
     Dosage: PRODUCT TAKEN BY MOTHER

REACTIONS (3)
  - Foetal malnutrition [None]
  - Maternal drugs affecting foetus [None]
  - Congenital hand malformation [None]

NARRATIVE: CASE EVENT DATE: 20140903
